FAERS Safety Report 19822942 (Version 1)
Quarter: 2021Q3

REPORT INFORMATION
  Report Type: Report from Study
  Country: US (occurrence: US)
  Receive Date: 20210913
  Receipt Date: 20210913
  Transmission Date: 20211014
  Serious: No
  Sender: FDA-Public Use
  Company Number: US-IPSEN BIOPHARMACEUTICALS, INC.-2021-21942

PATIENT
  Sex: Female

DRUGS (4)
  1. SOMATULINE DEPOT [Suspect]
     Active Substance: LANREOTIDE ACETATE
     Indication: PANCREATIC NEUROENDOCRINE TUMOUR METASTATIC
     Dosage: 120 MG/0.5 ML
     Route: 058
     Dates: start: 2020
  2. SOMATULINE DEPOT [Suspect]
     Active Substance: LANREOTIDE ACETATE
     Indication: METASTASES TO LIVER
  3. PEPCID [Concomitant]
     Active Substance: FAMOTIDINE
  4. SOMATULINE DEPOT [Suspect]
     Active Substance: LANREOTIDE ACETATE
     Indication: METASTASES TO BONE

REACTIONS (1)
  - Blood glucose decreased [Recovering/Resolving]
